FAERS Safety Report 5270179-0 (Version None)
Quarter: 2007Q1

REPORT INFORMATION
  Report Type: 
  Country: None (occurrence: None)
  Receive Date: 20070314
  Receipt Date: 20070301
  Transmission Date: 20070707
  Serious: Yes (Hospitalization)
  Sender: FDA-Public Use
  Company Number: FSC_0065_2007

PATIENT
  Age: 86 Year
  Sex: Female
  Weight: 70 kg

DRUGS (3)
  1. ISOPTIN [Suspect]
     Indication: CARDIAC FIBRILLATION
     Dosage: 120 MG TID PO
     Route: 048
     Dates: start: 19710101
  2. ISOPTIN [Suspect]
     Indication: HEART RATE IRREGULAR
     Dosage: 120 MG TID PO
     Route: 048
     Dates: start: 19710101
  3. ACETYLSALICYLIC ACID SRT [Concomitant]

REACTIONS (4)
  - ANGIOEDEMA [None]
  - CEREBRAL THROMBOSIS [None]
  - HYPERSENSITIVITY [None]
  - THROMBOSIS [None]
